FAERS Safety Report 11649596 (Version 1)
Quarter: 2015Q4

REPORT INFORMATION
  Report Type: Spontaneous
  Country: US (occurrence: US)
  Receive Date: 20151021
  Receipt Date: 20151021
  Transmission Date: 20160304
  Serious: Yes (Other)
  Sender: FDA-Public Use
  Company Number: PHHY2015US121139

PATIENT
  Sex: Male

DRUGS (13)
  1. MELATONIN [Suspect]
     Active Substance: MELATONIN
     Indication: PRODUCT USED FOR UNKNOWN INDICATION
     Dosage: 10 MG, QD (ONE CAPSULE BY MOUTH DAILY)
     Route: 048
     Dates: start: 20150714
  2. PERCOCET [Suspect]
     Active Substance: ACETAMINOPHEN\OXYCODONE HYDROCHLORIDE
     Indication: PAIN
     Dosage: (10-325 MG TABS, TAKE 1 OR 2 BY MOUTH EVERY 4-6 HOURS AS NEEDED)
     Route: 048
     Dates: start: 20150903
  3. METHENAMINE MANDELATE. [Suspect]
     Active Substance: METHENAMINE MANDELATE
     Indication: PRODUCT USED FOR UNKNOWN INDICATION
     Dosage: 1 G, BID (1 TABLET, BY MOUTH, TWICE DAILY)
     Route: 048
     Dates: start: 20150715
  4. GABLOFEN [Suspect]
     Active Substance: BACLOFEN
     Indication: SPINAL CORD INJURY
  5. OXYBUTYNIN CHLORIDE. [Suspect]
     Active Substance: OXYBUTYNIN CHLORIDE
     Indication: PRODUCT USED FOR UNKNOWN INDICATION
     Dosage: 5 MG, BID (ONE TABLET, BY MOUTH, TWICE DAILY)
     Route: 048
     Dates: start: 20150715
  6. AMLODIPINE BESYLATE. [Suspect]
     Active Substance: AMLODIPINE BESYLATE
     Indication: PRODUCT USED FOR UNKNOWN INDICATION
     Dosage: 10 MG, QD (ONE TABLET BY MOUTH DAILY)
     Route: 048
     Dates: start: 20150714
  7. BACLOFEN. [Suspect]
     Active Substance: BACLOFEN
     Indication: PRODUCT USED FOR UNKNOWN INDICATION
     Dosage: 20 MG, QD (ONE BY MOUTH DAILY)
     Route: 048
     Dates: start: 20140715
  8. AZO-STANDARD [Suspect]
     Active Substance: PHENAZOPYRIDINE HYDROCHLORIDE
     Indication: PRODUCT USED FOR UNKNOWN INDICATION
     Dosage: 1 DF, QD (ONE TABLET BY MOUTH DAILY)
     Route: 048
     Dates: start: 20150714
  9. GABLOFEN [Suspect]
     Active Substance: BACLOFEN
     Indication: MUSCLE SPASTICITY
     Dosage: 195 UG, QD
     Route: 037
     Dates: start: 20150929
  10. GABLOFEN [Suspect]
     Active Substance: BACLOFEN
     Indication: SPINAL CORD DISORDER
  11. NEXIUM [Suspect]
     Active Substance: ESOMEPRAZOLE MAGNESIUM
     Indication: PRODUCT USED FOR UNKNOWN INDICATION
     Dosage: 40 MG, QD (ONE TABLET BY MOUTH DAILY)
     Route: 048
  12. HYDROCODONE BITARTRATE AND ACETAMINOPHEN [Suspect]
     Active Substance: ACETAMINOPHEN\HYDROCODONE BITARTRATE
     Indication: PRODUCT USED FOR UNKNOWN INDICATION
     Dosage: 1 DF, PRN (ONE BY MOUTH AS NEEDED)
     Route: 048
     Dates: start: 20150715
  13. BACLOFEN INTRATHECAL [Suspect]
     Active Substance: BACLOFEN
     Indication: MUSCLE SPASTICITY
     Dosage: UNK
     Route: 037
     Dates: start: 20150929

REACTIONS (6)
  - White blood cell count abnormal [Unknown]
  - Culture wound positive [Unknown]
  - Staphylococcal infection [Unknown]
  - Implant site infection [Unknown]
  - Staphylococcus test positive [Unknown]
  - Gram stain positive [Unknown]
